FAERS Safety Report 4834186-1 (Version None)
Quarter: 2005Q4

REPORT INFORMATION
  Report Type: 
  Country: None (occurrence: None)
  Receive Date: 20051122
  Receipt Date: 20051116
  Transmission Date: 20060501
  Serious: Yes (Life-Threatening, Hospitalization)
  Sender: FDA-Public Use
  Company Number: 2005SE06625

PATIENT
  Age: 21262 Day
  Sex: Female

DRUGS (2)
  1. ATACAND [Suspect]
     Indication: HYPERTENSION
     Route: 048
     Dates: start: 20020101, end: 20040802
  2. CENTYL WITH POTASSIUM CHLORIDE [Concomitant]

REACTIONS (1)
  - APLASTIC ANAEMIA [None]
